FAERS Safety Report 18536157 (Version 1)
Quarter: 2020Q4

REPORT INFORMATION
  Report Type: Other
  Country: US (occurrence: US)
  Receive Date: 20201124
  Receipt Date: 20201124
  Transmission Date: 20210114
  Serious: No
  Sender: FDA-Public Use
  Company Number: US-ROCHE-2718936

PATIENT
  Sex: Male

DRUGS (1)
  1. OCREVUS [Suspect]
     Active Substance: OCRELIZUMAB
     Indication: RELAPSING MULTIPLE SCLEROSIS
     Dosage: 300 MG ON DAY 1 AND 15, THEN 600 MG ONCE IN 6 MONTHS.?ON 15/OCT/2018, 15/APR/2019, 09/SEP/2019, 21/O
     Route: 042
     Dates: start: 20181001

REACTIONS (1)
  - SARS-CoV-2 test positive [Not Recovered/Not Resolved]
